FAERS Safety Report 8819520 (Version 1)
Quarter: 2012Q4

REPORT INFORMATION
  Report Type: 
  Country: US (occurrence: US)
  Receive Date: 20120930
  Receipt Date: 20120930
  Transmission Date: 20130627
  Serious: No
  Sender: FDA-Public Use
  Company Number: US-009507513-1209USA012024

PATIENT
  Sex: Male

DRUGS (3)
  1. PEGINTRON [Suspect]
     Indication: HEPATITIS C
     Dosage: UNK
  2. REBETOL [Suspect]
     Indication: HEPATITIS C
     Dosage: UNK
  3. TELAPREVIR [Concomitant]
     Indication: HEPATITIS C

REACTIONS (2)
  - Haemorrhoids [Unknown]
  - Frequent bowel movements [Unknown]
